FAERS Safety Report 6086319-X (Version None)
Quarter: 2009Q1

REPORT INFORMATION
  Report Type: 
  Country: None (occurrence: None)
  Receive Date: 20090220
  Receipt Date: 20090212
  Transmission Date: 20090719
  Serious: Yes (Hospitalization)
  Sender: FDA-Public Use
  Company Number: NL-B.I. PHARMACEUTICALS,INC./RIDGEFIELD-2009-NL-00103NL

PATIENT
  Sex: Female

DRUGS (1)
  1. MICARDIS [Suspect]
     Dates: start: 20090210

REACTIONS (5)
  - COUGH [None]
  - EYE HAEMORRHAGE [None]
  - LUNG DISORDER [None]
  - MICTURITION URGENCY [None]
  - SUFFOCATION FEELING [None]
